FAERS Safety Report 7090162-2 (Version None)
Quarter: 2010Q4

REPORT INFORMATION
  Report Type: 
  Country: None (occurrence: None)
  Receive Date: 20101105
  Receipt Date: 20101105
  Transmission Date: 20110411
  Serious: Yes (Hospitalization)
  Sender: FDA-Public Use
  Company Number: None

PATIENT
  Age: 63 Year
  Sex: Male
  Weight: 122.5 kg

DRUGS (13)
  1. ENALAPRILAT [Suspect]
     Indication: BLOOD PRESSURE SYSTOLIC INCREASED
     Dosage: 0.625MG ONE TIME IV
     Route: 042
     Dates: start: 20101001
  2. ENALAPRILAT [Suspect]
     Indication: BLOOD PRESSURE SYSTOLIC INCREASED
     Dosage: 0.625MG ONE TIME IV
     Route: 042
     Dates: start: 20101005
  3. ENALAPRILAT [Suspect]
  4. OXAZEPAM [Concomitant]
  5. NICOTINE [Concomitant]
  6. NOVOLOG SSI [Concomitant]
  7. PROTONIX [Concomitant]
  8. CASODEX [Concomitant]
  9. LORTAB [Concomitant]
  10. CALCIUM CARB [Concomitant]
  11. VIT D [Concomitant]
  12. NIFEREX [Concomitant]
  13. COUMADIN [Concomitant]

REACTIONS (4)
  - ANGIOEDEMA [None]
  - LIP SWELLING [None]
  - URTICARIA [None]
  - WHEEZING [None]
